FAERS Safety Report 21980657 (Version 1)
Quarter: 2023Q1

REPORT INFORMATION
  Report Type: Report from Study
  Country: JP (occurrence: JP)
  Receive Date: 20230211
  Receipt Date: 20230211
  Transmission Date: 20230418
  Serious: Yes (Hospitalization, Other)
  Sender: FDA-Public Use
  Company Number: JP-CELLTRION INC.-2019JP028877

PATIENT

DRUGS (62)
  1. INVESTIGATIONAL BIOSIMILARS [Suspect]
     Active Substance: INVESTIGATIONAL BIOSIMILARS
     Indication: HER2 positive gastric cancer
     Dosage: 310 MILLIGRAM, QD
     Route: 041
     Dates: start: 20190108, end: 20190108
  2. INVESTIGATIONAL BIOSIMILARS [Suspect]
     Active Substance: INVESTIGATIONAL BIOSIMILARS
     Dosage: 310 MILLIGRAM, QD
     Route: 041
     Dates: start: 20190129, end: 20190129
  3. INVESTIGATIONAL BIOSIMILARS [Suspect]
     Active Substance: INVESTIGATIONAL BIOSIMILARS
     Dosage: 310 MILLIGRAM, QD
     Route: 041
     Dates: start: 20190219, end: 20190219
  4. INVESTIGATIONAL BIOSIMILARS [Suspect]
     Active Substance: INVESTIGATIONAL BIOSIMILARS
     Dosage: 310 MILLIGRAM, QD
     Route: 041
     Dates: start: 20190313, end: 20190313
  5. INVESTIGATIONAL BIOSIMILARS [Suspect]
     Active Substance: INVESTIGATIONAL BIOSIMILARS
     Dosage: 310 MILLIGRAM, QD
     Route: 041
     Dates: start: 20190403, end: 20190403
  6. INVESTIGATIONAL BIOSIMILARS [Suspect]
     Active Substance: INVESTIGATIONAL BIOSIMILARS
     Dosage: 310 MILLIGRAM, QD
     Route: 041
     Dates: start: 20190424, end: 20190424
  7. INVESTIGATIONAL BIOSIMILARS [Suspect]
     Active Substance: INVESTIGATIONAL BIOSIMILARS
     Dosage: 310 MILLIGRAM, QD
     Route: 041
     Dates: start: 20190515, end: 20190515
  8. INVESTIGATIONAL BIOSIMILARS [Suspect]
     Active Substance: INVESTIGATIONAL BIOSIMILARS
     Dosage: 310 MILLIGRAM, QD
     Route: 041
     Dates: start: 20190605, end: 20190605
  9. INVESTIGATIONAL BIOSIMILARS [Suspect]
     Active Substance: INVESTIGATIONAL BIOSIMILARS
     Dosage: 310 MILLIGRAM, QD
     Route: 041
     Dates: start: 20190626, end: 20190626
  10. INVESTIGATIONAL BIOSIMILARS [Suspect]
     Active Substance: INVESTIGATIONAL BIOSIMILARS
     Dosage: 310 MILLIGRAM, QD
     Route: 041
     Dates: start: 20190717, end: 20190717
  11. INVESTIGATIONAL BIOSIMILARS [Suspect]
     Active Substance: INVESTIGATIONAL BIOSIMILARS
     Dosage: 310 MILLIGRAM, QD
     Route: 041
     Dates: start: 20190724, end: 20190724
  12. INVESTIGATIONAL BIOSIMILARS [Suspect]
     Active Substance: INVESTIGATIONAL BIOSIMILARS
     Dosage: 310 MILLIGRAM, QD
     Route: 041
     Dates: start: 20190807, end: 20190807
  13. INVESTIGATIONAL BIOSIMILARS [Suspect]
     Active Substance: INVESTIGATIONAL BIOSIMILARS
     Dosage: 310 MILLIGRAM, QD
     Route: 041
     Dates: start: 20190828, end: 20190828
  14. INVESTIGATIONAL BIOSIMILARS [Suspect]
     Active Substance: INVESTIGATIONAL BIOSIMILARS
     Dosage: 310 MILLIGRAM, QD
     Route: 041
     Dates: start: 20190918, end: 20190918
  15. INVESTIGATIONAL BIOSIMILARS [Suspect]
     Active Substance: INVESTIGATIONAL BIOSIMILARS
     Dosage: 310 MILLIGRAM, QD
     Route: 041
     Dates: start: 20191009, end: 20191009
  16. INVESTIGATIONAL BIOSIMILARS [Suspect]
     Active Substance: INVESTIGATIONAL BIOSIMILARS
     Dosage: 310 MILLIGRAM, QD
     Route: 041
     Dates: start: 20191030, end: 20191030
  17. INVESTIGATIONAL BIOSIMILARS [Suspect]
     Active Substance: INVESTIGATIONAL BIOSIMILARS
     Dosage: 310 MILLIGRAM, QD
     Route: 041
     Dates: start: 20191120, end: 20191120
  18. INVESTIGATIONAL BIOSIMILARS [Suspect]
     Active Substance: INVESTIGATIONAL BIOSIMILARS
     Dosage: 310 MILLIGRAM, QD
     Route: 041
     Dates: start: 20191212, end: 20191212
  19. INVESTIGATIONAL BIOSIMILARS [Suspect]
     Active Substance: INVESTIGATIONAL BIOSIMILARS
     Dosage: 310 MILLIGRAM, QD
     Route: 041
     Dates: start: 20200108, end: 20200108
  20. INVESTIGATIONAL BIOSIMILARS [Suspect]
     Active Substance: INVESTIGATIONAL BIOSIMILARS
     Dosage: 310 MILLIGRAM, QD
     Route: 041
     Dates: start: 20200129, end: 20200129
  21. INVESTIGATIONAL BIOSIMILARS [Suspect]
     Active Substance: INVESTIGATIONAL BIOSIMILARS
     Dosage: 310 MILLIGRAM, QD
     Route: 041
     Dates: start: 20200219, end: 20200219
  22. INVESTIGATIONAL BIOSIMILARS [Suspect]
     Active Substance: INVESTIGATIONAL BIOSIMILARS
     Dosage: 310 MILLIGRAM, QD
     Route: 041
     Dates: start: 20200311
  23. INVESTIGATIONAL BIOSIMILARS [Suspect]
     Active Substance: INVESTIGATIONAL BIOSIMILARS
     Dosage: 310 MILLIGRAM, QD
     Route: 041
     Dates: start: 20200311, end: 20200311
  24. OXALIPLATIN [Suspect]
     Active Substance: OXALIPLATIN
     Indication: HER2 positive gastric cancer
     Dosage: 100 MILLIGRAM, QD
     Route: 041
     Dates: start: 20190108, end: 20190108
  25. OXALIPLATIN [Suspect]
     Active Substance: OXALIPLATIN
     Dosage: 100 MILLIGRAM, QD
     Route: 041
     Dates: start: 20190122, end: 20190122
  26. OXALIPLATIN [Suspect]
     Active Substance: OXALIPLATIN
     Dosage: 78 MILLIGRAM, QD
     Route: 041
     Dates: start: 20190213, end: 20190213
  27. OXALIPLATIN [Suspect]
     Active Substance: OXALIPLATIN
     Dosage: 78 MILLIGRAM, QD
     Route: 041
     Dates: start: 20190227, end: 20190227
  28. OXALIPLATIN [Suspect]
     Active Substance: OXALIPLATIN
     Dosage: 78 MILLIGRAM, QD
     Route: 041
     Dates: start: 20190313, end: 20190313
  29. OXALIPLATIN [Suspect]
     Active Substance: OXALIPLATIN
     Dosage: 78 MILLIGRAM, QD
     Route: 041
     Dates: start: 20190327, end: 20190327
  30. DEXAMETHASONE [Suspect]
     Active Substance: DEXAMETHASONE
     Indication: Prophylaxis of nausea and vomiting
     Dosage: 6.6 MILLIGRAM, QD, DAY1
     Route: 065
     Dates: start: 20180927, end: 20181126
  31. DEXAMETHASONE [Suspect]
     Active Substance: DEXAMETHASONE
     Dosage: 6.6 MILLIGRAM, QD, DAY1
     Route: 065
     Dates: start: 20181127, end: 20190327
  32. DEXAMETHASONE [Suspect]
     Active Substance: DEXAMETHASONE
     Dosage: 6.6 MILLIGRAM, QD, DAY2, 3
     Route: 065
     Dates: start: 20181127
  33. DEXAMETHASONE [Suspect]
     Active Substance: DEXAMETHASONE
     Dosage: 9.9 UNK
     Route: 065
     Dates: start: 20190108, end: 20190329
  34. DEXAMETHASONE [Suspect]
     Active Substance: DEXAMETHASONE
     Dosage: 6.6 MILLIGRAM, QD, DAY2, 3
     Route: 065
     Dates: start: 20190108, end: 20190329
  35. DEXAMETHASONE [Suspect]
     Active Substance: DEXAMETHASONE
     Dosage: 9.9 MG QD
     Route: 065
     Dates: start: 20181127, end: 20190327
  36. DEXAMETHASONE [Suspect]
     Active Substance: DEXAMETHASONE
     Dosage: 8 MILLIGRAM, QD, DAY2, 3
     Route: 065
     Dates: start: 20181129, end: 20190329
  37. DEXAMETHASONE [Suspect]
     Active Substance: DEXAMETHASONE
     Dosage: 6.6 MILLIGRAM, QD, DAY1
     Route: 065
     Dates: start: 20190416
  38. FLUOROURACIL [Suspect]
     Active Substance: FLUOROURACIL
     Indication: HER2 positive gastric cancer
     Dosage: BOLUS 600MG, DIV 3600
     Route: 042
     Dates: start: 20190108, end: 20190110
  39. FLUOROURACIL [Suspect]
     Active Substance: FLUOROURACIL
     Dosage: BOLUS 600MG, DIV 3600 MG
     Route: 042
     Dates: start: 20190122, end: 20190124
  40. FLUOROURACIL [Suspect]
     Active Substance: FLUOROURACIL
     Dosage: BOLUS 500MG, DIV 3000 MG
     Route: 042
     Dates: start: 20190213, end: 20190215
  41. FLUOROURACIL [Suspect]
     Active Substance: FLUOROURACIL
     Dosage: BOLUS 500MG, DIV 3000 MG
     Route: 042
     Dates: start: 20190227, end: 20190301
  42. FLUOROURACIL [Suspect]
     Active Substance: FLUOROURACIL
     Dosage: BOLUS 500MG, DIV 3000 MG
     Route: 042
     Dates: start: 20190313, end: 20190315
  43. FLUOROURACIL [Suspect]
     Active Substance: FLUOROURACIL
     Dosage: UNK
     Route: 041
     Dates: start: 20190327, end: 20190329
  44. FLUOROURACIL [Suspect]
     Active Substance: FLUOROURACIL
     Dosage: UNK
     Route: 041
     Dates: start: 20190416, end: 20190418
  45. FLUOROURACIL [Suspect]
     Active Substance: FLUOROURACIL
     Dosage: UNK
     Route: 041
     Dates: start: 20190501, end: 20190503
  46. FLUOROURACIL [Suspect]
     Active Substance: FLUOROURACIL
     Dosage: UNK
     Route: 041
     Dates: start: 20190515, end: 20190517
  47. FLUOROURACIL [Suspect]
     Active Substance: FLUOROURACIL
     Dosage: UNK
     Route: 041
     Dates: start: 20190529, end: 20190531
  48. FLUOROURACIL [Suspect]
     Active Substance: FLUOROURACIL
     Dosage: UNK
     Route: 041
     Dates: start: 20190612, end: 20190614
  49. FLUOROURACIL [Suspect]
     Active Substance: FLUOROURACIL
     Dosage: UNK
     Route: 041
     Dates: start: 20190626, end: 20190628
  50. FLUOROURACIL [Suspect]
     Active Substance: FLUOROURACIL
     Dosage: UNK
     Route: 041
     Dates: start: 20190628, end: 20190630
  51. FLUOROURACIL [Suspect]
     Active Substance: FLUOROURACIL
     Dosage: UNK
     Route: 041
     Dates: start: 20190710, end: 20190712
  52. FLUOROURACIL [Suspect]
     Active Substance: FLUOROURACIL
     Dosage: UNK
     Route: 041
     Dates: start: 20190724, end: 20190726
  53. FLUOROURACIL [Suspect]
     Active Substance: FLUOROURACIL
     Dosage: UNK
     Route: 041
     Dates: start: 20190807, end: 20190809
  54. FLUOROURACIL [Suspect]
     Active Substance: FLUOROURACIL
     Dosage: UNK
     Route: 041
     Dates: start: 20190821, end: 20190823
  55. FLUOROURACIL [Suspect]
     Active Substance: FLUOROURACIL
     Dosage: UNK
     Route: 041
     Dates: start: 20190904, end: 20190906
  56. FLUOROURACIL [Suspect]
     Active Substance: FLUOROURACIL
     Dosage: UNK
     Route: 041
     Dates: start: 20190918, end: 20190920
  57. FLUOROURACIL [Suspect]
     Active Substance: FLUOROURACIL
     Dosage: UNK
     Route: 041
     Dates: start: 20191002, end: 20191004
  58. FLUOROURACIL [Suspect]
     Active Substance: FLUOROURACIL
     Dosage: UNK
     Route: 041
     Dates: start: 20191016, end: 20191018
  59. FLUOROURACIL [Suspect]
     Active Substance: FLUOROURACIL
     Dosage: UNK
     Route: 041
     Dates: start: 20191030, end: 20191101
  60. LEVOLEUCOVORIN CALCIUM [Suspect]
     Active Substance: LEVOLEUCOVORIN CALCIUM
     Indication: HER2 positive gastric cancer
     Dosage: 300 MG, QD
     Route: 065
     Dates: start: 20180927
  61. GRANISETRON [Concomitant]
     Active Substance: GRANISETRON
     Indication: Prophylaxis of nausea and vomiting
     Dosage: UNK
     Dates: start: 20181127
  62. PALONOSETRON HYDROCHLORIDE [Concomitant]
     Active Substance: PALONOSETRON HYDROCHLORIDE
     Indication: Prophylaxis of nausea and vomiting
     Dosage: UNK
     Dates: start: 20190108

REACTIONS (9)
  - Pneumonia [Recovered/Resolved]
  - Neuropathy peripheral [Recovering/Resolving]
  - Blood lactate dehydrogenase increased [Not Recovered/Not Resolved]
  - Hyponatraemia [Recovered/Resolved]
  - Neutrophil count decreased [Recovered/Resolved]
  - Platelet count decreased [Not Recovered/Not Resolved]
  - Decreased appetite [Recovered/Resolved]
  - Anaemia [Not Recovered/Not Resolved]
  - Underdose [Unknown]

NARRATIVE: CASE EVENT DATE: 20190108
